FAERS Safety Report 15859038 (Version 9)
Quarter: 2019Q4

REPORT INFORMATION
  Report Type: Spontaneous
  Country: US (occurrence: US)
  Receive Date: 20190123
  Receipt Date: 20191202
  Transmission Date: 20200122
  Serious: Yes (Other)
  Sender: FDA-Public Use
  Company Number: US-PFIZER INC-2019021544

PATIENT
  Age: 6 Decade
  Sex: Male

DRUGS (1)
  1. SILDENAFIL CITRATE. [Suspect]
     Active Substance: SILDENAFIL CITRATE
     Dosage: CONSUMED ENTIRE 30-ML BOTTLE (TOTAL DOSE, 750 MG, ALMOST 10 TIMES THE RECOMMENDED DOSE OF 80MG)
     Route: 048

REACTIONS (7)
  - Visual field defect [Not Recovered/Not Resolved]
  - Photophobia [Recovering/Resolving]
  - Overdose [Unknown]
  - Retinal pigment epitheliopathy [Unknown]
  - Retinal toxicity [Unknown]
  - Blindness transient [Unknown]
  - Night blindness [Recovering/Resolving]
